FAERS Safety Report 5272868-0 (Version None)
Quarter: 2007Q1

REPORT INFORMATION
  Report Type: 
  Country: None (occurrence: None)
  Receive Date: 20070322
  Receipt Date: 20070312
  Transmission Date: 20070707
  Serious: Yes (Hospitalization, Other)
  Sender: FDA-Public Use
  Company Number: PHRM2007FR01032

PATIENT
  Age: 54 Year
  Sex: Male

DRUGS (4)
  1. NEORAL [Suspect]
     Indication: RENAL TRANSPLANT
     Dosage: 350 MG DAILY
     Route: 048
  2. CORTANCYL [Suspect]
     Indication: RENAL TRANSPLANT
     Route: 048
  3. AZATHIOPRINE SODIUM [Suspect]
     Indication: RENAL TRANSPLANT
  4. ALLOPURINOL [Suspect]

REACTIONS (18)
  - BLOOD CREATININE INCREASED [None]
  - BLOOD CULTURE POSITIVE [None]
  - BLOOD UREA INCREASED [None]
  - C-REACTIVE PROTEIN INCREASED [None]
  - CHILLS [None]
  - CULTURE URINE POSITIVE [None]
  - ESCHERICHIA INFECTION [None]
  - HERPES SIMPLEX [None]
  - HYPERTHERMIA [None]
  - HYPOTENSION [None]
  - INFLAMMATION [None]
  - KERATITIS HERPETIC [None]
  - LEUKOCYTOSIS [None]
  - LYMPHOCELE [None]
  - PANCYTOPENIA [None]
  - PYELONEPHRITIS [None]
  - SEPSIS [None]
  - SOMNOLENCE [None]
